FAERS Safety Report 9257414 (Version 1)
Quarter: 2013Q2

REPORT INFORMATION
  Report Type: Spontaneous
  Country: US (occurrence: US)
  Receive Date: 20130426
  Receipt Date: 20130426
  Transmission Date: 20140414
  Serious: Yes (Other)
  Sender: FDA-Public Use
  Company Number: US-PFIZER INC-2013129172

PATIENT
  Age: 47 Year
  Sex: Female
  Weight: 71.66 kg

DRUGS (19)
  1. CELEBREX [Suspect]
     Indication: FIBROMYALGIA
     Dosage: UNK
  2. CELEBREX [Suspect]
     Indication: OSTEOARTHRITIS
  3. CELEBREX [Suspect]
     Indication: PAIN
  4. LYRICA [Suspect]
     Indication: FIBROMYALGIA
     Dosage: UNK
  5. LYRICA [Suspect]
     Indication: OSTEOARTHRITIS
  6. LYRICA [Suspect]
     Indication: PAIN
  7. IBUPROFEN [Suspect]
     Indication: FIBROMYALGIA
     Dosage: UNK
  8. IBUPROFEN [Suspect]
     Indication: OSTEOARTHRITIS
  9. IBUPROFEN [Suspect]
     Indication: PAIN
  10. MELOXICAM [Suspect]
     Indication: FIBROMYALGIA
     Dosage: 7.5 MG, 2X/DAY
  11. MELOXICAM [Suspect]
     Indication: OSTEOARTHRITIS
  12. MELOXICAM [Suspect]
     Indication: PAIN
  13. CYMBALTA [Suspect]
     Indication: FIBROMYALGIA
     Dosage: 60 MG, 2X/DAY
  14. CYMBALTA [Suspect]
     Indication: OSTEOARTHRITIS
  15. CYMBALTA [Suspect]
     Indication: PAIN
  16. VICODIN [Suspect]
     Indication: FIBROMYALGIA
     Dosage: UNK
  17. VICODIN [Suspect]
     Indication: OSTEOARTHRITIS
  18. VICODIN [Suspect]
     Indication: PAIN
  19. BACLOFEN [Concomitant]
     Indication: MUSCLE RELAXANT THERAPY
     Dosage: UNK,AS NEEDED

REACTIONS (2)
  - Osteoarthritis [Unknown]
  - Drug ineffective [Unknown]
